FAERS Safety Report 8224333-6 (Version None)
Quarter: 2012Q1

REPORT INFORMATION
  Report Type: 
  Country: None (occurrence: None)
  Receive Date: 20120321
  Receipt Date: 20120307
  Transmission Date: 20120608
  Serious: Yes (Other)
  Sender: FDA-Public Use
  Company Number: DK-VALEANT-2012VX001144

PATIENT

DRUGS (4)
  1. LEUCOVORIN CALCIUM [Concomitant]
     Route: 065
  2. FLUOROURACIL [Suspect]
     Route: 065
  3. FLUOROURACIL [Suspect]
     Indication: COLORECTAL CANCER
     Route: 040
  4. OXALIPLATIN [Concomitant]
     Route: 065

REACTIONS (3)
  - CARDIOTOXICITY [None]
  - ELECTROCARDIOGRAM CHANGE [None]
  - ANGINA PECTORIS [None]
